FAERS Safety Report 13092535 (Version 2)
Quarter: 2018Q1

REPORT INFORMATION
  Report Type: Spontaneous
  Country: US (occurrence: US)
  Receive Date: 20170106
  Receipt Date: 20180208
  Transmission Date: 20180508
  Serious: No
  Sender: FDA-Public Use
  Company Number: US-JNJFOC-20161202803

PATIENT
  Age: 18 Year
  Sex: Male

DRUGS (20)
  1. DEPAKOTE [Concomitant]
     Active Substance: DIVALPROEX SODIUM
     Indication: SCHIZOPHRENIA
     Dosage: QAM (IN THE MORNING)
     Route: 048
     Dates: start: 20160413
  2. ZYPREXA [Concomitant]
     Active Substance: OLANZAPINE
     Indication: SCHIZOPHRENIA
     Dosage: QPM (EVERY EVENING)
     Route: 048
  3. SEROQUEL [Concomitant]
     Active Substance: QUETIAPINE FUMARATE
     Indication: SCHIZOPHRENIA
     Route: 048
     Dates: start: 20160310, end: 20160413
  4. VITAMIN D [Concomitant]
     Active Substance: CHOLECALCIFEROL
     Indication: VITAMIN D DEFICIENCY
     Dosage: 008 } 17 AUG 2016 } VITAMIN??D DEFICIENCY
     Route: 048
     Dates: start: 20160817, end: 20160920
  5. DEPAKOTE [Concomitant]
     Active Substance: DIVALPROEX SODIUM
     Indication: SCHIZOPHRENIA
     Dosage: HS (AT BEDTIME)
     Route: 048
     Dates: start: 20160413
  6. DEPAKOTE [Concomitant]
     Active Substance: DIVALPROEX SODIUM
     Indication: PSYCHOTIC DISORDER
     Dosage: QAM (IN THE MORNING)
     Route: 048
     Dates: start: 201507, end: 20160413
  7. DEPAKOTE [Concomitant]
     Active Substance: DIVALPROEX SODIUM
     Indication: PSYCHOTIC DISORDER
     Dosage: HS (AT BEDTIME)
     Route: 048
     Dates: start: 201507, end: 20160413
  8. DEPAKOTE [Concomitant]
     Active Substance: DIVALPROEX SODIUM
     Indication: SCHIZOPHRENIA
     Dosage: QAM (IN THE MORNING)
     Route: 048
     Dates: start: 201507, end: 20160413
  9. ADVIL [Concomitant]
     Active Substance: IBUPROFEN
     Indication: HEADACHE
     Dosage: 007 } 26 AUG 2016 }??MIGRAINE HEADACHE
     Route: 048
     Dates: start: 20160827, end: 20160827
  10. SEROQUEL [Concomitant]
     Active Substance: QUETIAPINE FUMARATE
     Indication: PSYCHOTIC DISORDER
     Route: 048
     Dates: start: 20160413
  11. VITAMIN D [Concomitant]
     Active Substance: CHOLECALCIFEROL
     Indication: VITAMIN D DEFICIENCY
     Dosage: 500000002 } 10 MAY 2016 } VITAMIND DEFICIENCY????500000
     Route: 048
     Dates: start: 20160510, end: 20160511
  12. THORAZINE [Concomitant]
     Active Substance: CHLORPROMAZINE
     Indication: PSYCHOTIC DISORDER
     Dosage: HS (AT BEDTIME); 004 } 16 AUG 2016 }??HOSPITALIZATION EXACERBATION OF PSYCHOSIS
     Route: 048
     Dates: start: 20160819
  13. MUCINEX [Concomitant]
     Active Substance: GUAIFENESIN
     Indication: COUGH
     Dosage: QD (EVERY DAY); 005 } 26 AUG 2016 } COUGH
     Route: 048
     Dates: start: 20160826, end: 20160829
  14. DEPAKOTE [Concomitant]
     Active Substance: DIVALPROEX SODIUM
     Indication: PSYCHOTIC DISORDER
     Dosage: QAM (IN THE MORNING)
     Route: 048
     Dates: start: 20160413
  15. SEROQUEL [Concomitant]
     Active Substance: QUETIAPINE FUMARATE
     Indication: PSYCHOTIC DISORDER
     Route: 048
     Dates: start: 20160310, end: 20160413
  16. TYLENOL [Suspect]
     Active Substance: ACETAMINOPHEN
     Indication: PYREXIA
     Route: 065
     Dates: start: 20160826, end: 20160826
  17. ADVIL [Concomitant]
     Active Substance: IBUPROFEN
     Indication: HEADACHE
     Route: 048
     Dates: start: 20151007
  18. DEPAKOTE [Concomitant]
     Active Substance: DIVALPROEX SODIUM
     Indication: PSYCHOTIC DISORDER
     Dosage: HS (AT BEDTIME)
     Route: 048
     Dates: start: 20160413
  19. DEPAKOTE [Concomitant]
     Active Substance: DIVALPROEX SODIUM
     Indication: SCHIZOPHRENIA
     Dosage: HS (AT BEDTIME)
     Route: 048
     Dates: start: 201507, end: 20160413
  20. SEROQUEL [Concomitant]
     Active Substance: QUETIAPINE FUMARATE
     Indication: SCHIZOPHRENIA
     Route: 048
     Dates: start: 20160413

REACTIONS (5)
  - Pyrexia [Recovered/Resolved]
  - Cough [Recovered/Resolved]
  - Off label use [Unknown]
  - Migraine [Recovered/Resolved]
  - Incorrect dose administered [Unknown]

NARRATIVE: CASE EVENT DATE: 20160826
